FAERS Safety Report 7246107-5 (Version None)
Quarter: 2011Q1

REPORT INFORMATION
  Report Type: 
  Country: None (occurrence: None)
  Receive Date: 20110126
  Receipt Date: 20110121
  Transmission Date: 20110831
  Serious: Yes (Other)
  Sender: FDA-Public Use
  Company Number: A0908037A

PATIENT
  Age: 85 Year
  Sex: Female

DRUGS (6)
  1. EYE DROPS [Concomitant]
  2. ADVAIR [Suspect]
     Indication: CHRONIC OBSTRUCTIVE PULMONARY DISEASE
     Dosage: 1PUFF TWICE PER DAY
     Route: 055
     Dates: start: 20110117, end: 20110119
  3. BIOTIN [Concomitant]
  4. SPIRIVA [Concomitant]
  5. CALCIUM [Concomitant]
  6. CENTRUM SILVER [Concomitant]

REACTIONS (4)
  - MYOCARDIAL INFARCTION [None]
  - CHEST DISCOMFORT [None]
  - POOR QUALITY SLEEP [None]
  - FLATULENCE [None]
